FAERS Safety Report 17529555 (Version 1)
Quarter: 2020Q1

REPORT INFORMATION
  Report Type: Spontaneous
  Country: CA (occurrence: CA)
  Receive Date: 20200311
  Receipt Date: 20200311
  Transmission Date: 20200409
  Serious: Yes (Other)
  Sender: FDA-Public Use
  Company Number: CA-TEVA-2020-CA-1198757

PATIENT
  Age: 71 Year
  Sex: Male

DRUGS (3)
  1. METHOTREXATE. [Suspect]
     Active Substance: METHOTREXATE
     Indication: PRODUCT USED FOR UNKNOWN INDICATION
     Dosage: 1 ML, 1 EVERY 1 WEEK
     Route: 058
  2. SULFASALAZINE. [Suspect]
     Active Substance: SULFASALAZINE
     Indication: PRODUCT USED FOR UNKNOWN INDICATION
     Dosage: 2 GRAM DAILY;
     Route: 065
  3. ARAVA [Concomitant]
     Active Substance: LEFLUNOMIDE
     Dosage: 10 MILLIGRAM DAILY;

REACTIONS (4)
  - Neuroendocrine carcinoma [Unknown]
  - Diarrhoea [Unknown]
  - Neoplasm [Unknown]
  - Hepatic neoplasm [Unknown]
